FAERS Safety Report 6888375-5 (Version None)
Quarter: 2010Q3

REPORT INFORMATION
  Report Type: 
  Country: None (occurrence: None)
  Receive Date: 20100730
  Receipt Date: 20100716
  Transmission Date: 20110219
  Serious: Yes (Hospitalization)
  Sender: FDA-Public Use
  Company Number: NL-GENENTECH-303603

PATIENT
  Sex: Male
  Weight: 72 kg

DRUGS (7)
  1. RITUXIMAB [Suspect]
     Indication: DIFFUSE LARGE B-CELL LYMPHOMA
     Dosage: 700 MG, Q8W
     Route: 042
     Dates: start: 20100120
  2. PREDNISONE [Suspect]
     Indication: DIFFUSE LARGE B-CELL LYMPHOMA
     Dosage: 100 MG, QDX5D/14DC
     Route: 048
     Dates: start: 20100120
  3. MORPHINE [Concomitant]
     Indication: PAIN
     Dosage: UNK
     Route: 048
     Dates: start: 20091106, end: 20100316
  4. MORPHINE [Concomitant]
     Dosage: UNK
     Route: 048
     Dates: start: 20100316, end: 20100316
  5. PARACETAMOL [Concomitant]
     Indication: PAIN
     Dosage: UNK
     Route: 048
     Dates: start: 20100316, end: 20100318
  6. AMOXICILLIN AND CLAVULANATE POTASSIUM [Concomitant]
     Indication: PROPHYLAXIS
     Dosage: UNK
     Route: 048
     Dates: start: 20100316, end: 20100323
  7. DICILLIN [Concomitant]
     Indication: PROPHYLAXIS
     Dosage: UNK
     Route: 048
     Dates: start: 20091107, end: 20100316

REACTIONS (1)
  - HAEMORRHAGE [None]
